FAERS Safety Report 15289237 (Version 1)
Quarter: 2018Q3

REPORT INFORMATION
  Report Type: Spontaneous
  Country: US (occurrence: US)
  Receive Date: 20180803
  Receipt Date: 20180803
  Transmission Date: 20181010
  Serious: Yes (Hospitalization, Disabling)
  Sender: FDA-Public Use
  Company Number: None

PATIENT
  Age: 3 Year
  Sex: Female
  Weight: 19.35 kg

DRUGS (1)
  1. CEFDINIR. [Suspect]
     Active Substance: CEFDINIR
     Indication: INFECTION
     Dosage: ?          QUANTITY:1 TABLESPOON(S);?
     Route: 048
     Dates: start: 20171223, end: 20180102

REACTIONS (3)
  - Injury to brachial plexus due to birth trauma [None]
  - Nerve injury [None]
  - Muscular weakness [None]

NARRATIVE: CASE EVENT DATE: 20171223
